FAERS Safety Report 9738541 (Version 2)
Quarter: 2016Q3

REPORT INFORMATION
  Report Type: Spontaneous
  Country: FR (occurrence: FR)
  Receive Date: 20131209
  Receipt Date: 20160811
  Transmission Date: 20161109
  Serious: Yes (Other)
  Sender: FDA-Public Use
  Company Number: FR-AMGEN-FRASP2013085568

PATIENT
  Age: 48 Year
  Sex: Female

DRUGS (4)
  1. VENTOLINE                          /00139501/ [Concomitant]
     Active Substance: ALBUTEROL
     Indication: ASTHMA
     Dosage: UNK
  2. ENBREL [Suspect]
     Active Substance: ETANERCEPT
     Indication: PRODUCT USED FOR UNKNOWN INDICATION
     Dosage: UNK
     Route: 058
     Dates: start: 201306, end: 201307
  3. IMIGRANE                           /01044802/ [Concomitant]
     Dosage: UNK
     Route: 048
  4. AERIUS [Concomitant]
     Active Substance: DESLORATADINE
     Dosage: UNK
     Route: 048

REACTIONS (1)
  - Asthma [Unknown]

NARRATIVE: CASE EVENT DATE: 201307
